FAERS Safety Report 17026791 (Version 2)
Quarter: 2021Q3

REPORT INFORMATION
  Report Type: Spontaneous
  Country: NL (occurrence: FR)
  Receive Date: 20191113
  Receipt Date: 20210714
  Transmission Date: 20211014
  Serious: Yes (Hospitalization, Other)
  Sender: FDA-Public Use
  Company Number: FR-FRESENIUS KABI-FK201912267

PATIENT

DRUGS (6)
  1. FERRIC CARBOXYMALTOSE [Suspect]
     Active Substance: FERRIC CARBOXYMALTOSE
     Indication: PRODUCT USED FOR UNKNOWN INDICATION
     Dosage: 1000 MG, UNK
     Route: 042
     Dates: start: 20190516, end: 20190516
  2. CYTARABINE/DAUNORUBICIN [Suspect]
     Active Substance: CYTARABINE\DAUNORUBICIN
     Indication: ACUTE MYELOID LEUKAEMIA
     Dosage: VYXEOS LIPOSOMAL (1 IU/M2, D1, 3, 5)
     Route: 042
     Dates: start: 20190516, end: 20190521
  3. LACTATED RINGERS SOLUTION [Suspect]
     Active Substance: CALCIUM CHLORIDE\POTASSIUM CHLORIDE\SODIUM CHLORIDE\SODIUM LACTATE
     Indication: PRODUCT USED FOR UNKNOWN INDICATION
     Dosage: UNK
     Route: 042
     Dates: start: 20190516, end: 20190517
  4. VALACICLOVIR [Suspect]
     Active Substance: VALACYCLOVIR HYDROCHLORIDE
     Indication: PRODUCT USED FOR UNKNOWN INDICATION
     Dosage: 500 MG, BID
     Route: 048
     Dates: start: 20190515
  5. ACETYLSALICYLATE LYSINE [Suspect]
     Active Substance: ASPIRIN DL-LYSINE
     Indication: PRODUCT USED FOR UNKNOWN INDICATION
     Dosage: 160 MG, UNK
     Route: 048
     Dates: start: 20190514
  6. MICAFUNGIN. [Suspect]
     Active Substance: MICAFUNGIN SODIUM
     Indication: PRODUCT USED FOR UNKNOWN INDICATION
     Dosage: 50 MG, UNK
     Route: 042
     Dates: start: 20190516, end: 20190519

REACTIONS (6)
  - Decreased appetite [Recovered/Resolved]
  - Toxic skin eruption [Recovered/Resolved]
  - Escherichia bacteraemia [Recovered/Resolved]
  - Pneumonia [Recovered/Resolved]
  - Hypertension [Recovered/Resolved]
  - Epistaxis [Recovered/Resolved]

NARRATIVE: CASE EVENT DATE: 20090523
